FAERS Safety Report 5595932-5 (Version None)
Quarter: 2008Q1

REPORT INFORMATION
  Report Type: 
  Country: None (occurrence: None)
  Receive Date: 20080118
  Receipt Date: 20080107
  Transmission Date: 20080703
  Serious: Yes (Hospitalization)
  Sender: FDA-Public Use
  Company Number: US-KINGPHARMUSA00001-K200701068

PATIENT

DRUGS (19)
  1. SKELAXIN [Suspect]
     Indication: MUSCLE RELAXANT THERAPY
     Dates: start: 20061126
  2. INVESTIGATIONAL DRUG [Suspect]
     Dosage: UNK, TID
     Route: 048
     Dates: start: 20061110, end: 20061123
  3. INVESTIGATIONAL DRUG [Suspect]
     Dosage: 3 CAPS, TID
     Route: 048
     Dates: start: 20061124, end: 20061125
  4. LORTAB [Suspect]
     Indication: PAIN
  5. CLONAZEPAM [Suspect]
     Indication: ANXIETY
  6. CLONAZEPAM [Suspect]
     Indication: DEPRESSION
  7. PHENERGAN /00033001/ [Suspect]
     Indication: NAUSEA
     Route: 042
     Dates: start: 20061126
  8. IMODIUM                            /00384302/ [Suspect]
     Indication: DIARRHOEA
  9. FLAGYL  /00012501/ [Suspect]
     Indication: DIVERTICULITIS
     Dates: start: 20061101
  10. OXYCONTIN [Suspect]
     Indication: PAIN
  11. ACETAMINOPHEN [Concomitant]
  12. PROZAC [Concomitant]
  13. SYNTHROID [Concomitant]
  14. ATENOLOL [Concomitant]
  15. SINGULAIR [Concomitant]
  16. RHINOCORT  /00614601/ [Concomitant]
  17. NEXIUM [Concomitant]
  18. LASIX [Concomitant]
  19. BENICAR [Concomitant]

REACTIONS (5)
  - BACK INJURY [None]
  - FALL [None]
  - FATIGUE [None]
  - INTERVERTEBRAL DISC DEGENERATION [None]
  - SPINAL COMPRESSION FRACTURE [None]
